FAERS Safety Report 22958936 (Version 3)
Quarter: 2025Q1

REPORT INFORMATION
  Report Type: Spontaneous
  Country: US (occurrence: US)
  Receive Date: 20230919
  Receipt Date: 20250123
  Transmission Date: 20250409
  Serious: Yes (Other)
  Sender: CSL BEHRING
  Company Number: US-BEH-2023163410

PATIENT
  Age: 5 Year
  Sex: Male

DRUGS (2)
  1. IDELVION [Suspect]
     Active Substance: COAGULATION FACTOR IX RECOMBINANT HUMAN
     Indication: Factor IX deficiency
     Dosage: 1100 INTERNATIONAL UNIT, QW
     Route: 042
     Dates: start: 201807
  2. IDELVION [Suspect]
     Active Substance: COAGULATION FACTOR IX RECOMBINANT HUMAN
     Indication: Factor IX deficiency
     Dosage: 1100 INTERNATIONAL UNIT, QW
     Route: 042
     Dates: start: 201807

REACTIONS (2)
  - Muscle haemorrhage [Unknown]
  - Food allergy [Unknown]

NARRATIVE: CASE EVENT DATE: 20230901
